FAERS Safety Report 21911634 (Version 1)
Quarter: 2023Q1

REPORT INFORMATION
  Report Type: Spontaneous
  Country: US (occurrence: US)
  Receive Date: 20230125
  Receipt Date: 20230125
  Transmission Date: 20230418
  Serious: Yes (Other)
  Sender: FDA-Public Use
  Company Number: US-002147023-NVSC2023US016436

PATIENT
  Sex: Male

DRUGS (2)
  1. BEOVU [Suspect]
     Active Substance: BROLUCIZUMAB-DBLL
     Indication: Neovascular age-related macular degeneration
     Dosage: 6 MG, UNKNOWN
     Route: 031
     Dates: start: 20200114
  2. BEOVU [Suspect]
     Active Substance: BROLUCIZUMAB-DBLL
     Indication: Choroidal neovascularisation

REACTIONS (10)
  - Retinopathy hypertensive [Unknown]
  - Retinal vascular occlusion [Unknown]
  - Uveitis [Unknown]
  - Retinal artery occlusion [Unknown]
  - Eye injury [Unknown]
  - Emotional distress [Unknown]
  - Deformity [Unknown]
  - Anxiety [Unknown]
  - Anhedonia [Unknown]
  - Eye pain [Unknown]
